FAERS Safety Report 12558342 (Version 1)
Quarter: 2016Q3

REPORT INFORMATION
  Report Type: Spontaneous
  Country: US (occurrence: US)
  Receive Date: 20160714
  Receipt Date: 20160714
  Transmission Date: 20161109
  Serious: No
  Sender: FDA-Public Use
  Company Number: US-GALDERMA-US16002157

PATIENT
  Age: 60 Year
  Sex: Female

DRUGS (10)
  1. LAROCHE POSEY MOISTURIZER [Concomitant]
     Route: 061
  2. FISH OIL WITH VITAMIN D [Concomitant]
     Dosage: 1000 IU
     Route: 048
  3. UNKNOWN VITAMIN C SERUM [Concomitant]
     Route: 061
  4. LEVOTHYROXINE. [Concomitant]
     Active Substance: LEVOTHYROXINE
     Indication: HYPOTHYROIDISM
     Dosage: 0.088 MG
     Route: 048
  5. ARGON OIL [Concomitant]
     Indication: DRY SKIN PROPHYLAXIS
     Route: 061
  6. CALCIUM WITH VITAMIN D [Concomitant]
     Active Substance: CALCIUM\VITAMIN D
     Dosage: 750 MG
     Route: 048
  7. SOOLANTRA [Suspect]
     Active Substance: IVERMECTIN
     Indication: ROSACEA
     Dosage: 1%
     Route: 061
     Dates: start: 20150512
  8. GARNIER SUNSCREEN WITH SPF 28 [Concomitant]
     Route: 061
  9. RETIN-A (TRETINOIN) [Concomitant]
     Dosage: 0.025
     Route: 061
     Dates: end: 20160428
  10. GINKGO BILOBA [Concomitant]
     Active Substance: GINKGO
     Route: 048

REACTIONS (3)
  - Dry skin [Not Recovered/Not Resolved]
  - Skin exfoliation [Not Recovered/Not Resolved]
  - Skin irritation [Not Recovered/Not Resolved]

NARRATIVE: CASE EVENT DATE: 20150512
